FAERS Safety Report 13641125 (Version 1)
Quarter: 2017Q2

REPORT INFORMATION
  Report Type: Spontaneous
  Country: US (occurrence: US)
  Receive Date: 20170609
  Receipt Date: 20170609
  Transmission Date: 20170830
  Serious: Yes (Life-Threatening, Hospitalization)
  Sender: FDA-Public Use
  Company Number: None

PATIENT
  Age: 48 Year
  Sex: Female
  Weight: 88.2 kg

DRUGS (9)
  1. NATURE-THROID [Concomitant]
     Active Substance: THYROID, PORCINE
  2. FLURAZEPAM [Concomitant]
     Active Substance: FLURAZEPAM\FLURAZEPAM HYDROCHLORIDE
  3. METFORMIN HCL [Concomitant]
     Active Substance: METFORMIN HYDROCHLORIDE
  4. PIOGLITAZONE. [Concomitant]
     Active Substance: PIOGLITAZONE
  5. VITAMIN B12 [Concomitant]
     Active Substance: CYANOCOBALAMIN
  6. LYRICA [Concomitant]
     Active Substance: PREGABALIN
  7. NOVOLOG [Concomitant]
     Active Substance: INSULIN ASPART
  8. CONTRAVE [Suspect]
     Active Substance: BUPROPION HYDROCHLORIDE\NALTREXONE HYDROCHLORIDE
     Indication: WEIGHT DECREASED
     Dosage: ?          QUANTITY:1 TABLET(S);?
     Route: 048
     Dates: start: 20170601, end: 20170601
  9. ALPRAZOLAM ER [Concomitant]
     Active Substance: ALPRAZOLAM

REACTIONS (3)
  - Dysarthria [None]
  - Blood glucose decreased [None]
  - Feeling abnormal [None]

NARRATIVE: CASE EVENT DATE: 20170601
